APPROVED DRUG PRODUCT: SELSUN
Active Ingredient: SELENIUM SULFIDE
Strength: 2.5% **Federal Register determination that product was not discontinued or withdrawn for safety or effectiveness reasons**
Dosage Form/Route: LOTION/SHAMPOO;TOPICAL
Application: N007936 | Product #001
Applicant: CHATTEM INC
Approved: Approved Prior to Jan 1, 1982 | RLD: Yes | RS: No | Type: DISCN